FAERS Safety Report 23452560 (Version 1)
Quarter: 2024Q1

REPORT INFORMATION
  Report Type: Spontaneous
  Country: US (occurrence: US)
  Receive Date: 20240129
  Receipt Date: 20240129
  Transmission Date: 20240409
  Serious: No
  Sender: FDA-Public Use
  Company Number: US-SAREPTA THERAPEUTICS INC.-SRP2023-004023

PATIENT
  Age: 2 Year
  Sex: Male
  Weight: 14.2 kg

DRUGS (4)
  1. AMONDYS 45 [Suspect]
     Active Substance: CASIMERSEN
     Indication: Duchenne muscular dystrophy
     Dosage: 400 MILLIGRAM, WEEKLY
     Route: 042
     Dates: start: 20230613, end: 20231001
  2. AMONDYS 45 [Suspect]
     Active Substance: CASIMERSEN
     Dosage: 400 MILLIGRAM, WEEKLY
     Route: 042
     Dates: start: 20231017
  3. CETIRIZINE HYDROCHLORIDE [Concomitant]
     Active Substance: CETIRIZINE HYDROCHLORIDE
     Indication: Product used for unknown indication
     Dosage: 1 MILLIGRAM PER MILLILITRE, PRN
     Route: 048
  4. ORAPRED [Concomitant]
     Active Substance: PREDNISOLONE SODIUM PHOSPHATE
     Indication: Product used for unknown indication
     Dosage: 3.6 MILLILITER, ON SATURDAY AND SUNDAY
     Dates: start: 20230826

REACTIONS (3)
  - Product dose omission issue [Unknown]
  - Product distribution issue [Unknown]
  - No adverse event [Unknown]

NARRATIVE: CASE EVENT DATE: 20231001
